FAERS Safety Report 7067885-4 (Version None)
Quarter: 2010Q4

REPORT INFORMATION
  Report Type: 
  Country: None (occurrence: None)
  Receive Date: 20101028
  Receipt Date: 20101015
  Transmission Date: 20110411
  Serious: Yes (Hospitalization, Other)
  Sender: FDA-Public Use
  Company Number: US-AMGEN-USASP2010000524

PATIENT

DRUGS (15)
  1. SENSIPAR [Suspect]
     Indication: HYPERCALCAEMIA
     Dosage: 30 MG, UNK
  2. SENSIPAR [Suspect]
     Dosage: 60 MG, UNK
  3. PROZAC [Concomitant]
  4. PEPCID [Concomitant]
  5. VALPROIC ACID [Concomitant]
  6. AMLODIPINE [Concomitant]
  7. BUPROPION [Concomitant]
  8. LEVOTHYROXINE [Concomitant]
  9. LIPITOR [Concomitant]
  10. FERROUS SULFATE [Concomitant]
  11. VITAMIN D [Concomitant]
  12. FOLIC ACID [Concomitant]
  13. ZEMPLAR [Concomitant]
  14. ABILIFY [Concomitant]
  15. CELEBREX [Concomitant]

REACTIONS (3)
  - BACK PAIN [None]
  - EXTRADURAL ABSCESS [None]
  - MUSCULOSKELETAL PAIN [None]
